FAERS Safety Report 23627517 (Version 1)
Quarter: 2024Q1

REPORT INFORMATION
  Report Type: Spontaneous
  Country: US (occurrence: US)
  Receive Date: 20240313
  Receipt Date: 20240313
  Transmission Date: 20240409
  Serious: Yes (Other)
  Sender: FDA-Public Use
  Company Number: US-ABBVIE-5671965

PATIENT
  Sex: Female

DRUGS (1)
  1. REFRESH CELLUVISC [Suspect]
     Active Substance: CARBOXYMETHYLCELLULOSE SODIUM
     Indication: Product used for unknown indication
     Route: 047

REACTIONS (6)
  - Blindness unilateral [Unknown]
  - Eye disorder [Unknown]
  - Visual impairment [Unknown]
  - Multiple sclerosis [Unknown]
  - Allergy to chemicals [Unknown]
  - Eye infection [Unknown]
